FAERS Safety Report 23378435 (Version 1)
Quarter: 2024Q1

REPORT INFORMATION
  Report Type: Spontaneous
  Country: US (occurrence: None)
  Receive Date: 20240106
  Receipt Date: 20240106
  Transmission Date: 20240410
  Serious: Yes (Hospitalization, Disabling)
  Sender: FDA-Public Use
  Company Number: None

PATIENT
  Age: 37 Year
  Sex: Male
  Weight: 173.25 kg

DRUGS (1)
  1. MOUNJARO [Suspect]
     Active Substance: TIRZEPATIDE
     Indication: Diabetes mellitus
     Dosage: OTHER FREQUENCY : WEEKLY;?
     Route: 058
     Dates: start: 20221115, end: 20230831

REACTIONS (6)
  - Anxiety [None]
  - Brain fog [None]
  - Vision blurred [None]
  - Chest pain [None]
  - Dysarthria [None]
  - Motor dysfunction [None]

NARRATIVE: CASE EVENT DATE: 20230306
